FAERS Safety Report 15377951 (Version 1)
Quarter: 2018Q3

REPORT INFORMATION
  Report Type: Spontaneous
  Country: US (occurrence: US)
  Receive Date: 20180913
  Receipt Date: 20180913
  Transmission Date: 20181010
  Serious: No
  Sender: FDA-Public Use
  Company Number: US-PFIZER INC-2018366419

PATIENT
  Age: 45 Year
  Sex: Female

DRUGS (1)
  1. METHOTREXATE SODIUM. [Suspect]
     Active Substance: METHOTREXATE SODIUM
     Dosage: 1 ML, WEEKLY (Q TUESDAY)
     Route: 058

REACTIONS (11)
  - Dry skin [Not Recovered/Not Resolved]
  - Fatigue [Unknown]
  - Headache [Unknown]
  - Skin exfoliation [Not Recovered/Not Resolved]
  - Pain in extremity [Not Recovered/Not Resolved]
  - Musculoskeletal stiffness [Unknown]
  - Joint swelling [Unknown]
  - Arthralgia [Not Recovered/Not Resolved]
  - Peripheral swelling [Unknown]
  - Urticaria [Recovering/Resolving]
  - Musculoskeletal pain [Not Recovered/Not Resolved]
